FAERS Safety Report 7826567-9 (Version None)
Quarter: 2011Q4

REPORT INFORMATION
  Report Type: 
  Country: None (occurrence: None)
  Receive Date: 20111018
  Receipt Date: 20110930
  Transmission Date: 20120403
  Serious: Yes (Hospitalization, Other)
  Sender: FDA-Public Use
  Company Number: 2010AL002998

PATIENT
  Sex: Female
  Weight: 61.2356 kg

DRUGS (24)
  1. OMEPRAZOLE [Concomitant]
  2. ATIVAN [Concomitant]
  3. FLUOXETINE [Concomitant]
  4. METRONIDAZOLE [Concomitant]
  5. PHENERGAN HCL [Concomitant]
  6. NEXIUM [Concomitant]
  7. METOCLOPRAMIDE [Suspect]
     Indication: IMPAIRED GASTRIC EMPTYING
     Dosage: 10 MG;PO
     Route: 048
     Dates: start: 20080601, end: 20080801
  8. TETRACYCLINE [Concomitant]
  9. ONDANSETRON [Concomitant]
  10. SINGULAIR [Concomitant]
  11. TRAMADOL HCL [Concomitant]
  12. HYDROCODONE BITARTRATE AND ACETAMINOPHEN [Concomitant]
  13. PROTONIX [Concomitant]
  14. NAPROXEN [Concomitant]
  15. AUGMENTIN [Concomitant]
  16. BENADRYL [Concomitant]
  17. LYBREL [Concomitant]
  18. AMITIZA [Concomitant]
  19. LORAZEPAM [Concomitant]
  20. MIRTAZAPINE [Concomitant]
  21. ZOFRAN [Concomitant]
  22. ULTRAM [Concomitant]
  23. MECLIZINE [Concomitant]
  24. DROPERIDOL [Concomitant]

REACTIONS (39)
  - DYSTONIA [None]
  - DEHYDRATION [None]
  - DYSMENORRHOEA [None]
  - RASH [None]
  - COLD SWEAT [None]
  - MYOFASCIAL PAIN SYNDROME [None]
  - JAW DISORDER [None]
  - MUSCLE SPASMS [None]
  - HEPATIC STEATOSIS [None]
  - PAIN [None]
  - HEADACHE [None]
  - HELICOBACTER GASTRITIS [None]
  - ERUCTATION [None]
  - LABYRINTHITIS [None]
  - EXTRAPYRAMIDAL DISORDER [None]
  - TREMOR [None]
  - POSTURAL ORTHOSTATIC TACHYCARDIA SYNDROME [None]
  - HAEMORRHOIDS [None]
  - GRIMACING [None]
  - ANXIETY [None]
  - NAUSEA [None]
  - VOMITING [None]
  - DYSPEPSIA [None]
  - CONVULSION [None]
  - ABDOMINAL PAIN [None]
  - IMPAIRED GASTRIC EMPTYING [None]
  - DROOLING [None]
  - MUSCLE TIGHTNESS [None]
  - MUSCLE TWITCHING [None]
  - BILIARY DYSKINESIA [None]
  - ECONOMIC PROBLEM [None]
  - EMOTIONAL DISORDER [None]
  - COELIAC DISEASE [None]
  - IRRITABLE BOWEL SYNDROME [None]
  - MUSCULOSKELETAL STIFFNESS [None]
  - CONSTIPATION [None]
  - RESPIRATORY DISORDER [None]
  - DEPRESSION [None]
  - HYPERHIDROSIS [None]
